FAERS Safety Report 4345108-4 (Version None)
Quarter: 2004Q2

REPORT INFORMATION
  Report Type: 
  Country: None (occurrence: None)
  Receive Date: 20040420
  Receipt Date: 20040412
  Transmission Date: 20050107
  Serious: Yes (Other)
  Sender: FDA-Public Use
  Company Number: 200411101BCC

PATIENT
  Sex: Male

DRUGS (3)
  1. ALEVE [Suspect]
     Indication: ARTHRITIS
     Dosage: ORAL
     Route: 048
  2. IBUPROFEN [Concomitant]
  3. ASPIRIN PRODUCTS [Concomitant]

REACTIONS (2)
  - DRUG INEFFECTIVE [None]
  - HEPATOCELLULAR DAMAGE [None]
